FAERS Safety Report 9412716 (Version 1)
Quarter: 2013Q3

REPORT INFORMATION
  Report Type: Spontaneous
  Country: US (occurrence: US)
  Receive Date: 20130722
  Receipt Date: 20130722
  Transmission Date: 20140515
  Serious: No
  Sender: FDA-Public Use
  Company Number: US-PFIZER INC-2013212299

PATIENT
  Sex: Female

DRUGS (3)
  1. ADVIL [Suspect]
     Dosage: 200 MG, UNK
  2. ADVIL [Suspect]
     Dosage: 800 MG, COUPLE OF TIMES IN A DAY
  3. ADVIL [Suspect]
     Dosage: UNK

REACTIONS (2)
  - Overdose [Unknown]
  - Drug screen positive [Unknown]
